FAERS Safety Report 20544512 (Version 4)
Quarter: 2024Q1

REPORT INFORMATION
  Report Type: Report from Study
  Country: FR (occurrence: FR)
  Receive Date: 20220303
  Receipt Date: 20240103
  Transmission Date: 20240410
  Serious: Yes (Hospitalization, Other)
  Sender: FDA-Public Use
  Company Number: FR-SERVIER-S22002056

PATIENT

DRUGS (9)
  1. PEGASPARGASE [Suspect]
     Active Substance: PEGASPARGASE
     Indication: Acute lymphocytic leukaemia
     Dosage: 3050 IU, D12
     Route: 042
     Dates: start: 20211201, end: 20211201
  2. PEGASPARGASE [Suspect]
     Active Substance: PEGASPARGASE
     Dosage: UNK
     Route: 042
     Dates: start: 20220112
  3. VINCRISTINE [Suspect]
     Active Substance: VINCRISTINE
     Indication: Acute lymphocytic leukaemia
     Dosage: 1.9 MG, D8
     Route: 042
     Dates: start: 20211127, end: 20211127
  4. VINCRISTINE [Suspect]
     Active Substance: VINCRISTINE
     Dosage: 1.8 MG, D15, D22
     Route: 042
     Dates: start: 20211204, end: 20211211
  5. METHOTREXATE [Suspect]
     Active Substance: METHOTREXATE
     Indication: Acute lymphocytic leukaemia
     Dosage: 15 MG, D5, D9, D13, D17, D24
     Route: 037
     Dates: start: 20211124
  6. CYTARABINE [Suspect]
     Active Substance: CYTARABINE
     Indication: Acute lymphocytic leukaemia
     Dosage: 30 MG, ON D9, D13, D17, D24
     Route: 037
     Dates: start: 20211128
  7. HYDROCORTISONE [Suspect]
     Active Substance: HYDROCORTISONE
     Indication: Acute lymphocytic leukaemia
     Dosage: 15 MG, ON D9, D13, D17, D24
     Route: 037
     Dates: start: 20211128
  8. DAUNORUBICIN [Suspect]
     Active Substance: DAUNORUBICIN
     Indication: Acute lymphocytic leukaemia
     Dosage: 38 MG, D8
     Route: 042
     Dates: start: 20211127, end: 20211127
  9. DAUNORUBICIN [Suspect]
     Active Substance: DAUNORUBICIN
     Dosage: 36.5 MG, D15 AND D22
     Route: 042
     Dates: start: 20211204, end: 20211211

REACTIONS (3)
  - Hyperbilirubinaemia [Recovered/Resolved]
  - Neuralgia [Recovered/Resolved]
  - Hepatic cytolysis [Recovered/Resolved]

NARRATIVE: CASE EVENT DATE: 20211211
